FAERS Safety Report 9880945 (Version 1)
Quarter: 2014Q1

REPORT INFORMATION
  Report Type: Spontaneous
  Country: FR (occurrence: FR)
  Receive Date: 20140207
  Receipt Date: 20140207
  Transmission Date: 20141002
  Serious: Yes (Death)
  Sender: FDA-Public Use
  Company Number: FR-009507513-1401FRA014072

PATIENT
  Age: 61 Year
  Sex: Male

DRUGS (15)
  1. ORGARAN [Suspect]
     Indication: DEEP VEIN THROMBOSIS
     Dosage: UNK
     Route: 042
     Dates: start: 20131130, end: 20131202
  2. CALCIPARINE [Suspect]
     Indication: DEEP VEIN THROMBOSIS
     Dosage: UNK
     Route: 058
     Dates: start: 20131120, end: 20131130
  3. KARDEGIC [Suspect]
     Indication: CEREBROVASCULAR ACCIDENT
     Dosage: UNK
     Route: 048
     Dates: start: 20131120, end: 20131130
  4. LOVENOX [Concomitant]
     Indication: DEEP VEIN THROMBOSIS
     Dosage: UNK
     Route: 058
     Dates: start: 20131112, end: 20131120
  5. OGASTORO [Concomitant]
     Dosage: UNK
     Route: 048
     Dates: start: 20131031, end: 20131130
  6. PERFALGAN [Concomitant]
     Dosage: UNK
     Route: 042
     Dates: start: 20131031, end: 20131129
  7. MORPHINE [Concomitant]
     Dosage: UNK
     Route: 042
     Dates: start: 20131123, end: 20131123
  8. TAHOR [Concomitant]
     Dosage: 1 DF, QD
     Route: 048
     Dates: end: 20131202
  9. SCOPOLAMINE [Concomitant]
     Dosage: UNK
     Route: 042
     Dates: start: 20131203, end: 20131203
  10. NIMBEX [Concomitant]
     Dosage: UNK
     Route: 042
     Dates: start: 20131123, end: 20131123
  11. DIPRIVAN [Concomitant]
     Dosage: UNK
     Route: 042
     Dates: start: 20131130, end: 20131130
  12. SUFENTA [Concomitant]
     Dosage: UNK
     Route: 042
     Dates: start: 20131130, end: 20131203
  13. ERYTHROMYCIN [Concomitant]
     Dosage: UNK
     Route: 042
     Dates: start: 20131203, end: 20131203
  14. CARDENSIEL [Concomitant]
     Dosage: UNK
     Route: 048
     Dates: start: 20131202, end: 20131203
  15. HYPNOVEL [Concomitant]
     Dosage: UNK
     Route: 042
     Dates: start: 20131203, end: 20131203

REACTIONS (2)
  - Meningorrhagia [Fatal]
  - Melaena [Fatal]
